FAERS Safety Report 8119316 (Version 11)
Quarter: 2014Q2

REPORT INFORMATION
  Report Type: Report from Study
  Country: FR (occurrence: FR)
  Receive Date: 20110902
  Receipt Date: 20140609
  Transmission Date: 20141212
  Serious: Yes (Hospitalization, Other)
  Sender: FDA-Public Use
  Company Number: FR-VERTEX PHARMACEUTICALS INC.-AE-2011-000454

PATIENT
  Age: 66 Year
  Sex: Female
  Weight: 82 kg

DRUGS (20)
  1. VX-950 (TELAPREVIR) [Suspect]
     Indication: HEPATITIS C
     Dosage: 750 MG, TABLET
     Route: 048
     Dates: start: 20110523, end: 20110815
  2. COPEGUS [Suspect]
     Indication: HEPATITIS C
     Dosage: 1000 MG, QD
     Route: 048
     Dates: start: 20110523, end: 20110718
  3. COPEGUS [Suspect]
     Dosage: 800 MG, QD
     Route: 048
     Dates: start: 20110719
  4. COPEGUS [Suspect]
     Dosage: 600 MG, QD
     Route: 048
     Dates: start: 20110824, end: 20110912
  5. COPEGUS [Suspect]
     Dosage: 400 MG, QD
     Route: 048
     Dates: start: 20110913, end: 20110913
  6. PEGASYS [Suspect]
     Indication: HEPATITIS C
     Dosage: 180 ?G, QW
     Route: 058
     Dates: start: 20110523, end: 20110822
  7. PEGASYS [Suspect]
     Dosage: 135 ?G, QW
     Route: 058
     Dates: start: 20110823, end: 20111003
  8. ALDACTAZINE [Concomitant]
     Indication: HYPERTENSION
     Dosage: UNK
  9. LEVEMIR [Concomitant]
     Indication: DIABETES MELLITUS
     Dosage: 55 IU, QD
     Route: 065
     Dates: start: 2004
  10. PROPRANOLOL [Concomitant]
     Indication: VARICES OESOPHAGEAL
     Dosage: UNK
  11. KALEORID [Concomitant]
     Indication: HYPOKALAEMIA
     Dosage: UNK
  12. EUPANTOL [Concomitant]
     Indication: GASTROOESOPHAGEAL REFLUX DISEASE
     Dosage: DOSAGE FORM: UNSPECIFIED
     Route: 065
     Dates: start: 201007
  13. CYNOMEL [Concomitant]
     Indication: HYPOTHYROIDISM
     Dosage: DOSAGE FORM: UNSPECIFIED
  14. CLINOMEL [Concomitant]
     Indication: PRODUCT USED FOR UNKNOWN INDICATION
     Dosage: 0.5 DF, QD
  15. BETAMETHASONE [Concomitant]
     Indication: PRODUCT USED FOR UNKNOWN INDICATION
     Dosage: UNK, QD
     Route: 065
  16. NEORECORMON [Concomitant]
     Indication: ANAEMIA
     Dosage: 30000 IU, QW
     Route: 065
     Dates: start: 20110610, end: 20110821
  17. NEORECORMON [Concomitant]
     Dosage: 60000 IU, QW
     Route: 065
     Dates: start: 20110822
  18. LASILIX [Concomitant]
     Indication: OEDEMA PERIPHERAL
     Dosage: 20 MG, QD
     Route: 065
     Dates: start: 20110822
  19. MOTILIUM [Concomitant]
     Indication: NAUSEA
     Dosage: UNK
  20. CELESTENE [Concomitant]
     Indication: RHINITIS
     Dosage: UNK

REACTIONS (15)
  - Hepatorenal syndrome [Unknown]
  - Portal hypertension [Unknown]
  - Confusional state [Recovered/Resolved]
  - Tremor [Not Recovered/Not Resolved]
  - Ascites [Recovered/Resolved]
  - Inflammation [Unknown]
  - Hepatic function abnormal [Unknown]
  - Abnormal behaviour [Unknown]
  - General physical health deterioration [Unknown]
  - Leukopenia [Unknown]
  - Asthenia [Recovered/Resolved]
  - Thrombocytopenia [Unknown]
  - Anaemia [Recovered/Resolved]
  - Cough [Unknown]
  - Urinary tract infection [Unknown]
